FAERS Safety Report 4715697-6 (Version None)
Quarter: 2005Q2

REPORT INFORMATION
  Report Type: 
  Country: None (occurrence: None)
  Receive Date: 20050630
  Receipt Date: 20050512
  Transmission Date: 20051028
  Serious: No
  Sender: FDA-Public Use
  Company Number: 214464

PATIENT
  Sex: Female

DRUGS (2)
  1. AVASTIN [Suspect]
     Indication: BREAST CANCER METASTATIC
     Route: 065
  2. TAXETERE (DOCETAXEL) [Concomitant]

REACTIONS (1)
  - THROMBOCYTOPENIA [None]
